FAERS Safety Report 15523866 (Version 3)
Quarter: 2018Q4

REPORT INFORMATION
  Report Type: Spontaneous
  Country: CH (occurrence: CH)
  Receive Date: 20181019
  Receipt Date: 20181116
  Transmission Date: 20190205
  Serious: Yes (Other)
  Sender: FDA-Public Use
  Company Number: CH-LPDUSPRD-20181912

PATIENT
  Sex: Male

DRUGS (2)
  1. NO DRUG NAME [Concomitant]
     Dosage: 22 TABLETS DAILY
     Route: 065
  2. FERINJECT [Suspect]
     Active Substance: FERRIC CARBOXYMALTOSE
     Dosage: (500 MG 1 IN 10 WK)
     Route: 041

REACTIONS (2)
  - Therapeutic response unexpected [Unknown]
  - Angina pectoris [Unknown]
